FAERS Safety Report 8988117 (Version 1)
Quarter: 2012Q4

REPORT INFORMATION
  Report Type: 
  Country: US (occurrence: US)
  Receive Date: 20121227
  Receipt Date: 20121227
  Transmission Date: 20130627
  Serious: No
  Sender: FDA-Public Use
  Company Number: US-PFIZER INC-2012330788

PATIENT
  Age: 63 Year
  Sex: Female
  Weight: 86 kg

DRUGS (7)
  1. LYRICA [Suspect]
     Indication: FIBROMYALGIA
     Dosage: 150 mg, 3x/day
     Route: 048
     Dates: end: 201212
  2. LANTUS [Concomitant]
     Dosage: UNK
  3. LEVOTHYROXINE [Concomitant]
     Dosage: UNK
  4. AMITRIPTYLINE [Concomitant]
     Dosage: UNK
  5. LASIX [Concomitant]
     Dosage: UNK
  6. LISINOPRIL W/HYDROCHLOROTHIAZIDE [Concomitant]
     Dosage: UNK
  7. MORPHINE [Concomitant]
     Dosage: 60 mg, UNK

REACTIONS (1)
  - Malaise [Unknown]
